FAERS Safety Report 14608511 (Version 1)
Quarter: 2018Q1

REPORT INFORMATION
  Report Type: Report from Study
  Country: BR (occurrence: BR)
  Receive Date: 20180307
  Receipt Date: 20180307
  Transmission Date: 20180509
  Serious: Yes (Death, Hospitalization)
  Sender: FDA-Public Use
  Company Number: BR-JNJFOC-20170502866

PATIENT
  Age: 60 Year
  Sex: Male
  Weight: 60.3 kg

DRUGS (23)
  1. ABIRATERONE ACETATE. [Suspect]
     Active Substance: ABIRATERONE ACETATE
     Indication: PROSTATE CANCER METASTATIC
     Dosage: LAST DOSE ADMINISTERED ON 27-APR-2017.
     Route: 048
     Dates: start: 20150724, end: 20170504
  2. POTASSIUM CHLORIDE. [Concomitant]
     Active Substance: POTASSIUM CHLORIDE
     Route: 065
  3. SODIUM CHLORIDE. [Concomitant]
     Active Substance: SODIUM CHLORIDE
     Route: 065
  4. CARVEDILOL. [Concomitant]
     Active Substance: CARVEDILOL
     Route: 065
  5. ENALAPRIL [Concomitant]
     Active Substance: ENALAPRIL
     Route: 065
  6. BISACODYL. [Concomitant]
     Active Substance: BISACODYL
     Route: 065
  7. METOCLOPRAMIDE. [Concomitant]
     Active Substance: METOCLOPRAMIDE
  8. OSELTAMIVIR [Concomitant]
     Active Substance: OSELTAMIVIR
     Route: 065
  9. DIPYRONE [Concomitant]
     Active Substance: DIPYRONE
     Route: 065
  10. FUROSEMIDE. [Concomitant]
     Active Substance: FUROSEMIDE
     Route: 048
  11. MAGNESIUM SULFATE. [Concomitant]
     Active Substance: MAGNESIUM SULFATE
     Route: 065
  12. OMEPRAZOLE. [Concomitant]
     Active Substance: OMEPRAZOLE
     Route: 065
  13. ATORVASTATIN [Concomitant]
     Active Substance: ATORVASTATIN
     Route: 065
  14. METOCLOPRAMIDE. [Concomitant]
     Active Substance: METOCLOPRAMIDE
  15. ENOXAPARIN [Concomitant]
     Active Substance: ENOXAPARIN
     Route: 065
  16. ACETYLSALICYLIC ACID [Concomitant]
     Active Substance: ASPIRIN
     Route: 065
  17. MORPHINE [Concomitant]
     Active Substance: MORPHINE
     Route: 065
  18. TRAMADOLE [Concomitant]
     Active Substance: TRAMADOL HYDROCHLORIDE
     Route: 065
  19. FUROSEMIDE. [Concomitant]
     Active Substance: FUROSEMIDE
     Route: 042
  20. ESPIRONOLACTON [Concomitant]
     Active Substance: SPIRONOLACTONE
     Route: 065
  21. ENOXAPARIN [Concomitant]
     Active Substance: ENOXAPARIN
     Route: 065
  22. PREDNISONE. [Suspect]
     Active Substance: PREDNISONE
     Indication: PROSTATE CANCER METASTATIC
     Dosage: LAST DOSE ADMINISTERED ON 27-APR-2017.
     Route: 048
     Dates: start: 20150724, end: 20170504
  23. ONDANSETRON [Concomitant]
     Active Substance: ONDANSETRON
     Route: 065

REACTIONS (2)
  - Death [Fatal]
  - Cardiac failure [Not Recovered/Not Resolved]

NARRATIVE: CASE EVENT DATE: 20170429
